FAERS Safety Report 13560754 (Version 1)
Quarter: 2017Q2

REPORT INFORMATION
  Report Type: Spontaneous
  Country: US (occurrence: US)
  Receive Date: 20170518
  Receipt Date: 20170518
  Transmission Date: 20170830
  Serious: No
  Sender: FDA-Public Use
  Company Number: US-ROCHE-1061478

PATIENT
  Age: 22 Year
  Sex: Male

DRUGS (1)
  1. NAPROXEN SODIUM. [Suspect]
     Active Substance: NAPROXEN SODIUM
     Indication: TOOTHACHE
     Dosage: FREQUENCY: PRN AS NECESSARY
     Route: 048
     Dates: start: 20120310, end: 20120310

REACTIONS (2)
  - Erythema [Unknown]
  - Glossitis [Unknown]

NARRATIVE: CASE EVENT DATE: 20120310
